FAERS Safety Report 4838400-8 (Version None)
Quarter: 2005Q4

REPORT INFORMATION
  Report Type: 
  Country: None (occurrence: None)
  Receive Date: 20051128
  Receipt Date: 20051118
  Transmission Date: 20060501
  Serious: Yes (Hospitalization)
  Sender: FDA-Public Use
  Company Number: PHRM2005FR03022

PATIENT
  Age: 75 Year
  Sex: Female

DRUGS (1)
  1. RITALIN [Suspect]
     Indication: HYPERSOMNIA
     Dosage: 60 MG/DAY
     Route: 048
     Dates: start: 19960101

REACTIONS (2)
  - ATRIAL FIBRILLATION [None]
  - ATRIAL FLUTTER [None]
